FAERS Safety Report 9350221 (Version 2)
Quarter: 2013Q3

REPORT INFORMATION
  Report Type: Spontaneous
  Country: US (occurrence: US)
  Receive Date: 20130617
  Receipt Date: 20130723
  Transmission Date: 20140515
  Serious: Yes (Hospitalization, Other)
  Sender: FDA-Public Use
  Company Number: US-009507513-1306USA001829

PATIENT
  Age: 66 Year
  Sex: Male
  Weight: 96.15 kg

DRUGS (6)
  1. MEVACOR TABLET [Suspect]
     Indication: BLOOD CHOLESTEROL INCREASED
     Dosage: 20 MG DAILY
     Route: 048
     Dates: end: 201302
  2. ANTIVERT (MECLIZINE HYDROCHLORIDE) [Suspect]
     Indication: VERTIGO
     Dosage: 25 MG, BID
     Dates: start: 20130222, end: 20130223
  3. ANTIVERT (MECLIZINE HYDROCHLORIDE) [Suspect]
     Indication: DIZZINESS
  4. ANTIVERT (MECLIZINE HYDROCHLORIDE) [Suspect]
     Indication: NAUSEA
  5. ANTIVERT (MECLIZINE HYDROCHLORIDE) [Suspect]
     Indication: VOMITING
  6. ASPIRIN [Suspect]
     Dosage: 81 MG DAILY

REACTIONS (2)
  - Cerebrovascular accident [Unknown]
  - Diplopia [Unknown]
